FAERS Safety Report 7753141-5 (Version None)
Quarter: 2011Q3

REPORT INFORMATION
  Report Type: 
  Country: None (occurrence: None)
  Receive Date: 20110915
  Receipt Date: 20110909
  Transmission Date: 20111222
  Serious: Yes (Other)
  Sender: FDA-Public Use
  Company Number: US-BRISTOL-MYERS SQUIBB COMPANY-16016974

PATIENT
  Age: 50 Year
  Sex: Female
  Weight: 92 kg

DRUGS (9)
  1. FLUOROURACIL [Suspect]
     Indication: COLORECTAL CANCER
     Dosage: 4500MG IV OVER 46 HOURS.
     Route: 041
     Dates: start: 20110816
  2. IMODIUM [Concomitant]
     Dosage: OTC IMODIUM.
  3. LUNESTA [Concomitant]
     Indication: SLEEP DISORDER
     Dosage: QHS.
  4. ONDANSETRON [Concomitant]
     Indication: NAUSEA
     Dosage: Q8H.
  5. XANAX [Concomitant]
     Indication: ANXIETY
     Dosage: 1DF: 0.25.Q8H.
  6. GABAPENTIN [Concomitant]
  7. ERBITUX [Suspect]
     Indication: COLORECTAL CANCER
     Dosage: 2ND DOSE ON 29AUG2011: 500MG.
     Route: 042
     Dates: start: 20110816
  8. LEUCOVORIN CALCIUM [Suspect]
     Indication: COLORECTAL CANCER
     Route: 042
     Dates: start: 20110816
  9. IRINOTECAN HCL [Suspect]
     Indication: COLORECTAL CANCER
     Dates: start: 20110816

REACTIONS (3)
  - HAEMORRHOIDS [None]
  - RASH [None]
  - DIARRHOEA [None]
